FAERS Safety Report 9447907 (Version 1)
Quarter: 2013Q3

REPORT INFORMATION
  Report Type: Report from Study
  Country: US (occurrence: US)
  Receive Date: 20130808
  Receipt Date: 20130808
  Transmission Date: 20140515
  Serious: Yes (Other)
  Sender: FDA-Public Use
  Company Number: PHEH2013US013061

PATIENT
  Sex: Female
  Weight: 63.49 kg

DRUGS (18)
  1. GILENYA [Suspect]
     Indication: MULTIPLE SCLEROSIS
     Dosage: 0.5 MG, QD
     Route: 048
     Dates: start: 20110504, end: 20121204
  2. GABAPENTINE [Concomitant]
     Indication: PARAESTHESIA
     Dosage: 1.5 DF, TID
     Route: 048
     Dates: start: 20110706, end: 20130308
  3. NEXIUM//ESOMEPRAZOLE MAGNESIUM [Concomitant]
     Route: 048
  4. BUPROPION HCL [Concomitant]
     Dosage: 300 MG, QD
     Route: 048
     Dates: start: 2010
  5. LOVAZA [Concomitant]
     Dosage: 4 DF, QD
     Route: 048
  6. LANSOPRAZOLE [Concomitant]
     Dosage: 1 DF, QD
     Route: 048
  7. VITAMIN B 12 [Concomitant]
     Dosage: 1 DF, QD
     Route: 048
  8. ZEGERID [Concomitant]
     Dosage: 1 DF, QD
     Route: 048
  9. ESTROGENS CONJUGATED [Concomitant]
     Route: 048
  10. PREVACID [Concomitant]
     Dosage: 1 DF, QD
     Route: 048
  11. VITAMIN D3 [Concomitant]
     Dosage: 1 DF, BID
     Route: 048
  12. VIVELLE [Concomitant]
     Dosage: 1 DF, BIW
     Route: 062
  13. HYDROMORPHONE [Concomitant]
     Dosage: 1 DF, BID
     Route: 048
  14. PREDNISONE [Concomitant]
     Dosage: 1 DF, TID
     Route: 048
  15. PROVIGIL//CHORIONIC GONADOTROPHIN [Concomitant]
     Dosage: 0.5 MG, QD
     Route: 048
  16. ACETAMINOPHEN W/HYDROCODONE [Concomitant]
     Dosage: 1 DF, PRN
     Route: 048
  17. CRESTOR [Concomitant]
     Dosage: 1 DF, QD
     Route: 048
  18. CYMBALTA [Concomitant]
     Dosage: 1 DF, BID
     Route: 048

REACTIONS (11)
  - Vertebral foraminal stenosis [Unknown]
  - Dyslipidaemia [Unknown]
  - Ligament sprain [Unknown]
  - Arthropathy [Unknown]
  - Arthralgia [Unknown]
  - Gait disturbance [Unknown]
  - Fall [Unknown]
  - Decreased appetite [Unknown]
  - Abdominal pain upper [Unknown]
  - Headache [Unknown]
  - Back pain [Unknown]
